FAERS Safety Report 20334772 (Version 2)
Quarter: 2022Q1

REPORT INFORMATION
  Report Type: Spontaneous
  Country: US (occurrence: US)
  Receive Date: 20220114
  Receipt Date: 20220225
  Transmission Date: 20220424
  Serious: Yes (Life-Threatening)
  Sender: FDA-Public Use
  Company Number: US-009507513-2201USA000803

PATIENT
  Age: 10 Year

DRUGS (2)
  1. NOXAFIL [Suspect]
     Active Substance: POSACONAZOLE
     Indication: Pulmonary mass
     Dosage: 400 MG DAILY
     Route: 042
     Dates: start: 20211231
  2. AMBISOME [Concomitant]
     Active Substance: AMPHOTERICIN B
     Indication: Pulmonary mass

REACTIONS (3)
  - Ill-defined disorder [Not Recovered/Not Resolved]
  - Product use issue [Unknown]
  - Product use in unapproved indication [Unknown]

NARRATIVE: CASE EVENT DATE: 20211231
